FAERS Safety Report 20370021 (Version 2)
Quarter: 2022Q1

REPORT INFORMATION
  Report Type: Spontaneous
  Country: JP (occurrence: JP)
  Receive Date: 20220124
  Receipt Date: 20220128
  Transmission Date: 20220424
  Serious: Yes (Other)
  Sender: FDA-Public Use
  Company Number: JP-FERRINGPH-2022FE00189

PATIENT
  Sex: Male

DRUGS (2)
  1. DEGARELIX [Suspect]
     Active Substance: DEGARELIX
     Indication: Product used for unknown indication
     Dosage: 80 MG
     Route: 058
  2. DEGARELIX [Suspect]
     Active Substance: DEGARELIX
     Dosage: UNK
     Route: 058

REACTIONS (1)
  - Cerebral infarction [Unknown]
